FAERS Safety Report 9825715 (Version 1)
Quarter: 2013Q4

REPORT INFORMATION
  Report Type: Spontaneous
  Country: US (occurrence: None)
  Receive Date: 20131028
  Receipt Date: 20131028
  Transmission Date: 20140711
  Serious: Yes (Other)
  Sender: FDA-Public Use
  Company Number: 2013US001865

PATIENT
  Age: 66 Year
  Sex: Male
  Weight: 132.04 kg

DRUGS (4)
  1. ICLUSIG [Suspect]
     Indication: CHRONIC MYELOID LEUKAEMIA
     Route: 048
     Dates: start: 20130615
  2. LASIX (FUROSEMIDE) [Concomitant]
  3. POTASSIUM CHLORIDE (POTASSIUM CHLORIDE) [Concomitant]
  4. ALLOPURINOL (ALLOPURINOL) [Concomitant]

REACTIONS (3)
  - Musculoskeletal pain [None]
  - Somnolence [None]
  - Arthralgia [None]
